FAERS Safety Report 6392677-9 (Version None)
Quarter: 2009Q4

REPORT INFORMATION
  Report Type: 
  Country: None (occurrence: None)
  Receive Date: 20091007
  Receipt Date: 20090724
  Transmission Date: 20100525
  Serious: No
  Sender: FDA-Public Use
  Company Number: US-ALLERGAN-0910373US

PATIENT
  Age: 53 Year
  Sex: Female

DRUGS (8)
  1. LATISSE [Suspect]
     Indication: HYPOTRICHOSIS
     Dosage: 1 GTT, QHS
     Route: 061
  2. FOSAMAX [Concomitant]
  3. CALCIUM [Concomitant]
  4. VITAMIN D [Concomitant]
  5. VITAMINS [Concomitant]
  6. MAKE UP [Concomitant]
  7. MASCARA [Concomitant]
  8. EYE LINER [Concomitant]

REACTIONS (4)
  - CONJUNCTIVITIS [None]
  - PRURITUS [None]
  - RHINORRHOEA [None]
  - SCAB [None]
